FAERS Safety Report 6840592-6 (Version None)
Quarter: 2010Q3

REPORT INFORMATION
  Report Type: 
  Country: None (occurrence: None)
  Receive Date: 20100714
  Receipt Date: 20100706
  Transmission Date: 20110219
  Serious: Yes (Other)
  Sender: FDA-Public Use
  Company Number: B0664307A

PATIENT
  Age: 70 Year
  Sex: Male

DRUGS (3)
  1. SERETIDE [Suspect]
     Indication: EMPHYSEMA
     Dosage: 500MCG PER DAY
     Route: 055
  2. SPIRIVA [Concomitant]
     Route: 055
  3. THEO-DUR [Concomitant]
     Route: 048

REACTIONS (1)
  - PNEUMONIA [None]
